FAERS Safety Report 5055224-X (Version None)
Quarter: 2006Q3

REPORT INFORMATION
  Report Type: 
  Country: None (occurrence: None)
  Receive Date: 20060714
  Receipt Date: 20060711
  Transmission Date: 20061208
  Serious: Yes (Hospitalization)
  Sender: FDA-Public Use
  Company Number: HQWYE778611JUL06

PATIENT
  Age: 65 Year
  Sex: Male

DRUGS (1)
  1. CORDARONE [Suspect]
     Indication: ATRIAL FIBRILLATION
     Route: 048
     Dates: start: 20060303, end: 20060307

REACTIONS (6)
  - CYTOLYTIC HEPATITIS [None]
  - DIARRHOEA [None]
  - DRUG INTOLERANCE [None]
  - LEUKOCYTOCLASTIC VASCULITIS [None]
  - TREMOR [None]
  - VISION BLURRED [None]
